FAERS Safety Report 14100157 (Version 2)
Quarter: 2017Q4

REPORT INFORMATION
  Report Type: Spontaneous
  Country: MY (occurrence: MY)
  Receive Date: 20171017
  Receipt Date: 20171106
  Transmission Date: 20180321
  Serious: Yes (Hospitalization, Other)
  Sender: FDA-Public Use
  Company Number: MY-ARIAD PHARMACEUTICALS, INC-2017MY009060

PATIENT
  Age: 52 Year
  Sex: Male
  Weight: 79 kg

DRUGS (2)
  1. ICLUSIG [Suspect]
     Active Substance: PONATINIB
     Indication: BLAST CRISIS IN MYELOGENOUS LEUKAEMIA
     Dosage: 30 MG, QD
     Route: 048
     Dates: start: 20170901, end: 20170929
  2. ICLUSIG [Suspect]
     Active Substance: PONATINIB
     Dosage: 15 MG ALTERNATING WITH 30 MG
     Route: 048
     Dates: start: 20171010

REACTIONS (4)
  - Muscle spasms [Recovered/Resolved]
  - Chronic myeloid leukaemia recurrent [Not Recovered/Not Resolved]
  - Fatigue [Recovered/Resolved]
  - Dizziness [Recovered/Resolved]

NARRATIVE: CASE EVENT DATE: 20170924
